FAERS Safety Report 4636075-4 (Version None)
Quarter: 2005Q2

REPORT INFORMATION
  Report Type: 
  Country: None (occurrence: None)
  Receive Date: 20050325
  Receipt Date: 20050104
  Transmission Date: 20051028
  Serious: No
  Sender: FDA-Public Use
  Company Number: USA040772614

PATIENT
  Age: 83 Year
  Sex: Female

DRUGS (1)
  1. FORTEO [Suspect]
     Indication: OSTEOPOROSIS
     Dosage: 20UG/1 DAY
     Dates: start: 20040713, end: 20041223

REACTIONS (10)
  - CRYING [None]
  - EMOTIONAL DISTRESS [None]
  - FEAR [None]
  - INJECTION SITE ERYTHEMA [None]
  - INJECTION SITE HAEMORRHAGE [None]
  - MEDICATION ERROR [None]
  - NERVOUSNESS [None]
  - OVERDOSE [None]
  - SKIN DISCOLOURATION [None]
  - TREMOR [None]
